FAERS Safety Report 9606785 (Version 4)
Quarter: 2015Q3

REPORT INFORMATION
  Report Type: Spontaneous
  Country: US (occurrence: US)
  Receive Date: 20131008
  Receipt Date: 20150731
  Transmission Date: 20151125
  Serious: Yes (Other)
  Sender: FDA-Public Use
  Company Number: US-AMGEN-USASP2013064644

PATIENT
  Age: 70 Year
  Sex: Female

DRUGS (2)
  1. ATENOLOL. [Concomitant]
     Active Substance: ATENOLOL
     Indication: HYPERTENSION
     Dosage: 50 MG, UNK
     Route: 065
  2. PROLIA [Suspect]
     Active Substance: DENOSUMAB
     Indication: OSTEOPOROSIS POSTMENOPAUSAL
     Dosage: UNK
     Route: 065
     Dates: start: 2013

REACTIONS (20)
  - Weight increased [Not Recovered/Not Resolved]
  - Rash maculo-papular [Unknown]
  - Muscle spasms [Unknown]
  - Dyspepsia [Unknown]
  - Bone density abnormal [Unknown]
  - Dizziness [Unknown]
  - Liver function test abnormal [Unknown]
  - Muscle twitching [Unknown]
  - Skin warm [Recovered/Resolved]
  - Swelling face [Unknown]
  - Blood pressure abnormal [Not Recovered/Not Resolved]
  - Pruritus generalised [Recovering/Resolving]
  - Cataract [Unknown]
  - Dry skin [Unknown]
  - Tooth infection [Unknown]
  - Blood calcium decreased [Unknown]
  - Rash pruritic [Unknown]
  - Tooth disorder [Unknown]
  - Hepatic steatosis [Unknown]
  - Rash erythematous [Recovered/Resolved]

NARRATIVE: CASE EVENT DATE: 201307
